FAERS Safety Report 6098040-2 (Version None)
Quarter: 2009Q1

REPORT INFORMATION
  Report Type: 
  Country: None (occurrence: None)
  Receive Date: 20090227
  Receipt Date: 20090225
  Transmission Date: 20090719
  Serious: Yes (Death, Other)
  Sender: FDA-Public Use
  Company Number: PHHY2009JP07036

PATIENT

DRUGS (1)
  1. GLEEVEC [Suspect]
     Indication: CHRONIC MYELOID LEUKAEMIA
     Dosage: UNK
     Route: 048
     Dates: start: 20020601, end: 20030101

REACTIONS (5)
  - CEREBRAL HAEMORRHAGE [None]
  - LARYNGEAL OEDEMA [None]
  - MALIGNANT NEOPLASM PROGRESSION [None]
  - PNEUMONIA [None]
  - STOMATITIS [None]
